FAERS Safety Report 16131738 (Version 1)
Quarter: 2019Q2

REPORT INFORMATION
  Report Type: Spontaneous
  Country: US (occurrence: US)
  Receive Date: 20190328
  Receipt Date: 20190328
  Transmission Date: 20190711
  Serious: Yes (Other)
  Sender: FDA-Public Use
  Company Number: None

PATIENT
  Age: 75 Year
  Sex: Female
  Weight: 77 kg

DRUGS (15)
  1. PREDNISONE 15MG [Concomitant]
  2. ZOLOFT [Concomitant]
     Active Substance: SERTRALINE HYDROCHLORIDE
  3. OCTAGAM IMMUNE GLOBULIN (HUMAN) [Suspect]
     Active Substance: HUMAN IMMUNOGLOBULIN G
     Indication: MYASTHENIA GRAVIS
     Route: 042
     Dates: start: 20190226, end: 20190228
  4. CALCIUM CARBONATE 600MG [Concomitant]
  5. PRAVASTATIN 10MG [Concomitant]
     Active Substance: PRAVASTATIN
  6. VIT D3 2000IU [Concomitant]
  7. LIOTHYRONINE 2.5MCG [Concomitant]
  8. MECLIZINE 25MG [Concomitant]
  9. METFORMIN 500MG [Concomitant]
     Active Substance: METFORMIN HYDROCHLORIDE
  10. ASCORBIC ACID 500MG [Concomitant]
  11. OCTAGAM IMMUNE GLOBULIN (HUMAN) [Suspect]
     Active Substance: HUMAN IMMUNOGLOBULIN G
     Indication: MYASTHENIA GRAVIS
     Route: 042
     Dates: start: 20190226, end: 20190228
  12. MAXZIDE 37.5-25MG [Concomitant]
  13. LEVOTHYROXINE 88MCG [Concomitant]
     Active Substance: LEVOTHYROXINE
  14. OMEPRAZOLE 20MG [Concomitant]
     Active Substance: OMEPRAZOLE
  15. SINGULAIR [Concomitant]
     Active Substance: MONTELUKAST SODIUM

REACTIONS (2)
  - Headache [None]
  - Pyrexia [None]

NARRATIVE: CASE EVENT DATE: 20190228
